FAERS Safety Report 7306708-2 (Version None)
Quarter: 2011Q1

REPORT INFORMATION
  Report Type: 
  Country: None (occurrence: None)
  Receive Date: 20110222
  Receipt Date: 20110217
  Transmission Date: 20110831
  Serious: Yes (Death, Life-Threatening, Hospitalization)
  Sender: FDA-Public Use
  Company Number: US-US-EMD SERONO, INC.-7018683

PATIENT
  Sex: Female

DRUGS (1)
  1. REBIF [Suspect]
     Indication: MULTIPLE SCLEROSIS
     Route: 058
     Dates: start: 20100818, end: 20100901

REACTIONS (7)
  - BRAIN NEOPLASM MALIGNANT [None]
  - FALL [None]
  - BRAIN NEOPLASM [None]
  - CENTRAL NERVOUS SYSTEM LESION [None]
  - VIRAL INFECTION [None]
  - MULTIPLE SCLEROSIS [None]
  - DECREASED APPETITE [None]
